FAERS Safety Report 6250072-7 (Version None)
Quarter: 2009Q2

REPORT INFORMATION
  Report Type: 
  Country: None (occurrence: None)
  Receive Date: 20090625
  Receipt Date: 20090617
  Transmission Date: 20091009
  Serious: Yes (Death)
  Sender: FDA-Public Use
  Company Number: 1-18868509

PATIENT

DRUGS (2)
  1. IBUPROFEN [Suspect]
     Indication: PATENT DUCTUS ARTERIOSUS
     Dosage: 10 MG/KG X1, 5 MG/KG X2, INTRAVENOUS
     Route: 042
  2. INDOMETHACIN [Concomitant]

REACTIONS (4)
  - INTESTINAL PERFORATION [None]
  - NECROTISING COLITIS [None]
  - POST PROCEDURAL COMPLICATION [None]
  - RENAL FAILURE ACUTE [None]
